FAERS Safety Report 6691297-6 (Version None)
Quarter: 2010Q2

REPORT INFORMATION
  Report Type: 
  Country: None (occurrence: None)
  Receive Date: 20100422
  Receipt Date: 20100412
  Transmission Date: 20101027
  Serious: Yes (Disabling, Congenital Anomaly)
  Sender: FDA-Public Use
  Company Number: US-JNJFOC-20100403574

PATIENT
  Sex: Male
  Weight: 4.13 kg

DRUGS (1)
  1. TOPAMAX [Suspect]
     Indication: DRUG EXPOSURE DURING PREGNANCY
     Route: 064

REACTIONS (4)
  - CLEFT LIP [None]
  - CLEFT PALATE [None]
  - DEPRESSED LEVEL OF CONSCIOUSNESS [None]
  - WEIGHT DECREASED [None]
